FAERS Safety Report 8928005 (Version 2)
Quarter: 2013Q1

REPORT INFORMATION
  Report Type: Spontaneous
  Country: US (occurrence: None)
  Receive Date: 20121120
  Receipt Date: 20121130
  Transmission Date: 20140127
  Serious: Yes (Hospitalization, Other)
  Sender: FDA-Public Use
  Company Number: 2012P1064077

PATIENT
  Age: 66 Year
  Sex: Female
  Weight: 68.95 kg

DRUGS (9)
  1. ISOSORBIDE MONONITRATE [Suspect]
     Indication: CORONARY ARTERIAL STENT INSERTION
     Route: 048
     Dates: start: 20121020, end: 20121106
  2. THEOPHYLLINE [Suspect]
     Dosage: 300  MG;   UNKNOWN - UNKNOWN
  3. COMBIVENT [Suspect]
     Dosage: UNKNOWN - UNKNOWN
  4. BABY ASPIRIN [Suspect]
     Dosage: 10/20/2012 - UNKNOWN
     Dates: start: 20121020
  5. KLOR-CON [Concomitant]
  6. FUROSEMIDE [Concomitant]
  7. ATORVASTATIN [Concomitant]
  8. PROBIOTICS [Concomitant]
  9. PLAVIX [Concomitant]

REACTIONS (18)
  - Epistaxis [None]
  - Headache [None]
  - Cerebral disorder [None]
  - Drug hypersensitivity [None]
  - Blood sodium decreased [None]
  - Candida infection [None]
  - Flushing [None]
  - Hearing impaired [None]
  - Cerebrovascular disorder [None]
  - Ear disorder [None]
  - Nausea [None]
  - Abdominal pain [None]
  - Palpitations [None]
  - Palpitations [None]
  - Angina pectoris [None]
  - Asthenia [None]
  - Muscular weakness [None]
  - Tremor [None]
